FAERS Safety Report 10306679 (Version 5)
Quarter: 2022Q2

REPORT INFORMATION
  Report Type: Spontaneous
  Country: US (occurrence: US)
  Receive Date: 20140715
  Receipt Date: 20220426
  Transmission Date: 20220721
  Serious: No
  Sender: FDA-Public Use
  Company Number: US-PFIZER INC-2014194682

PATIENT
  Age: 68 Year
  Sex: Female

DRUGS (2)
  1. PRISTIQ EXTENDED-RELEASE [Suspect]
     Active Substance: DESVENLAFAXINE SUCCINATE
     Indication: Serum serotonin decreased
     Dosage: 100 MG, 1X/DAY
     Dates: start: 2012
  2. PRISTIQ EXTENDED-RELEASE [Suspect]
     Active Substance: DESVENLAFAXINE SUCCINATE
     Indication: Depression

REACTIONS (5)
  - Drug ineffective [Unknown]
  - Emotional disorder [Recovered/Resolved]
  - Nasopharyngitis [Recovered/Resolved]
  - Anxiety [Unknown]
  - Hypoacusis [Unknown]

NARRATIVE: CASE EVENT DATE: 20150101
